FAERS Safety Report 9105755 (Version 1)
Quarter: 2013Q1

REPORT INFORMATION
  Report Type: Spontaneous
  Country: FR (occurrence: FR)
  Receive Date: 20130221
  Receipt Date: 20130221
  Transmission Date: 20140127
  Serious: Yes (Hospitalization)
  Sender: FDA-Public Use
  Company Number: FR-GLAXOSMITHKLINE-B0867133A

PATIENT
  Age: 90 Year
  Sex: Female

DRUGS (5)
  1. ARIXTRA [Suspect]
     Indication: THROMBOPHLEBITIS
     Dosage: 2.5MG PER DAY
     Route: 058
     Dates: start: 20121228, end: 20130104
  2. PREVISCAN [Suspect]
     Indication: PRODUCT USED FOR UNKNOWN INDICATION
     Dosage: 1UNIT PER DAY
     Route: 048
     Dates: end: 20130104
  3. LASILIX [Concomitant]
  4. AUGMENTIN [Concomitant]
     Dates: start: 20121221, end: 20121229
  5. FURADANTINE [Concomitant]
     Dates: start: 20121211

REACTIONS (2)
  - Haematoma [Unknown]
  - Underdose [Unknown]
